FAERS Safety Report 10363926 (Version 3)
Quarter: 2014Q4

REPORT INFORMATION
  Report Type: Spontaneous
  Country: CA (occurrence: None)
  Receive Date: 20140801
  Receipt Date: 20141015
  Transmission Date: 20150528
  Serious: Yes (Death, Disabling, Other)
  Sender: FDA-Public Use
  Company Number: CA-016508

PATIENT
  Age: 61 Year
  Sex: Male

DRUGS (6)
  1. FIRMAGON [Suspect]
     Active Substance: DEGARELIX ACETATE
     Indication: PROSTATE CANCER
     Dosage: 80 MG 1X/MONTH, 80 MG VIAL (20 MG/ML)  SUBCUTANEOUS
     Route: 058
     Dates: start: 20130206
  2. PROBIOTICS [Concomitant]
     Active Substance: PROBIOTICS NOS
  3. MVI [Concomitant]
     Active Substance: VITAMINS
  4. ANTIANDROGENS [Concomitant]
     Active Substance: UNSPECIFIED INGREDIENT
  5. CALCIUM [Concomitant]
     Active Substance: CALCIUM
  6. VITAMIN D [Concomitant]
     Active Substance: CHOLECALCIFEROL

REACTIONS (4)
  - Metastases to liver [None]
  - Abasia [None]
  - Liver disorder [None]
  - Liver scan abnormal [None]
